FAERS Safety Report 5061908-X (Version None)
Quarter: 2006Q3

REPORT INFORMATION
  Report Type: 
  Country: None (occurrence: None)
  Receive Date: 20060720
  Receipt Date: 20060720
  Transmission Date: 20061208
  Serious: Yes (Hospitalization)
  Sender: FDA-Public Use
  Company Number: None

PATIENT
  Age: 39 Year
  Sex: Male
  Weight: 152.4086 kg

DRUGS (2)
  1. CITALOPRAM [Suspect]
     Indication: DIABETES MELLITUS
  2. RISPERIDONE [Suspect]
     Indication: DIABETES MELLITUS

REACTIONS (2)
  - HYPOTENSION [None]
  - MENTAL IMPAIRMENT [None]
